FAERS Safety Report 5794666-1 (Version None)
Quarter: 2008Q2

REPORT INFORMATION
  Report Type: 
  Country: None (occurrence: None)
  Receive Date: 20080626
  Receipt Date: 20080617
  Transmission Date: 20081010
  Serious: Yes (Hospitalization)
  Sender: FDA-Public Use
  Company Number: GXKR2008ES05115

PATIENT
  Age: 20 Year
  Sex: Female

DRUGS (1)
  1. DIPHENHYDRAMINE (NGX) (DIPHENHYDRAMINE) UNKNOWN, 50MG [Suspect]
     Indication: INCORRECT DOSE ADMINISTERED
     Dosage: 16 DF, ONCE/SINGLE, ORAL
     Route: 048

REACTIONS (14)
  - AGITATION [None]
  - ANTICHOLINERGIC SYNDROME [None]
  - BALANCE DISORDER [None]
  - BLADDER DISTENSION [None]
  - BODY TEMPERATURE DECREASED [None]
  - CONFUSIONAL STATE [None]
  - ELECTROCARDIOGRAM QRS COMPLEX SHORTENED [None]
  - GAIT DISTURBANCE [None]
  - HALLUCINATION, AUDITORY [None]
  - INTENTIONAL OVERDOSE [None]
  - MUSCULAR WEAKNESS [None]
  - PUPIL FIXED [None]
  - SINUS TACHYCARDIA [None]
  - UNRESPONSIVE TO STIMULI [None]
